FAERS Safety Report 8697906 (Version 3)
Quarter: 2012Q4

REPORT INFORMATION
  Report Type: 
  Country: DE (occurrence: JP)
  Receive Date: 20120801
  Receipt Date: 20120829
  Transmission Date: 20130627
  Serious: Yes (Hospitalization)
  Sender: FDA-Public Use
  Company Number: JP-FRI-1000037486

PATIENT
  Age: 78 Year
  Sex: Male

DRUGS (6)
  1. MEMANTINE [Suspect]
     Indication: DEMENTIA ALZHEIMER^S TYPE
     Dosage: 20 mg
     Route: 048
     Dates: start: 201106, end: 20120718
  2. MEMANTINE [Suspect]
     Indication: DEMENTIA ALZHEIMER^S TYPE
     Dosage: 5 mg
     Route: 048
     Dates: start: 20120808, end: 20120813
  3. ARICEPT [Suspect]
     Indication: DEMENTIA ALZHEIMER^S TYPE
     Dosage: 10 mg
     Route: 048
     Dates: start: 20090529, end: 20120718
  4. JANUVIA [Concomitant]
     Indication: DIABETES MELLITUS
     Dosage: 50 mg
     Route: 048
  5. TICPILONE [Concomitant]
     Indication: ARTERIOSCLEROSIS
     Dosage: 300 mg
     Route: 048
  6. NU-LOTAN [Concomitant]
     Indication: HYPERTENSION
     Dosage: 50 mg
     Dates: end: 20120718

REACTIONS (2)
  - Tic [Recovered/Resolved]
  - Decreased appetite [Recovered/Resolved]
